FAERS Safety Report 6685822-9 (Version None)
Quarter: 2010Q2

REPORT INFORMATION
  Report Type: 
  Country: None (occurrence: None)
  Receive Date: 20100419
  Receipt Date: 20100409
  Transmission Date: 20101027
  Serious: Yes (Hospitalization)
  Sender: FDA-Public Use
  Company Number: DE-JNJFOC-20100402521

PATIENT
  Age: 71 Year
  Sex: Male

DRUGS (2)
  1. IMODIUM AKUT COMPLEX [Suspect]
     Route: 048
  2. IMODIUM AKUT COMPLEX [Suspect]
     Indication: DIARRHOEA
     Dosage: 2MG/125MG PER TABLET
     Route: 048

REACTIONS (2)
  - ILEUS [None]
  - OVERDOSE [None]
